FAERS Safety Report 12756753 (Version 1)
Quarter: 2016Q3

REPORT INFORMATION
  Report Type: Spontaneous
  Country: BR (occurrence: BR)
  Receive Date: 20160917
  Receipt Date: 20160917
  Transmission Date: 20161109
  Serious: Yes (Other)
  Sender: FDA-Public Use
  Company Number: BR-SUN PHARMACEUTICAL INDUSTRIES LTD-2016R5-124145

PATIENT
  Age: 48 Year
  Sex: Male
  Weight: 60 kg

DRUGS (2)
  1. ATENOLOL. [Concomitant]
     Active Substance: ATENOLOL
     Indication: HYPERTENSION
     Dosage: 25 MG, QD (AT MORNING)
     Route: 048
  2. CEFUROXIME AXETIL. [Suspect]
     Active Substance: CEFUROXIME AXETIL
     Indication: TESTICULAR DISORDER
     Dosage: 1 DF, BID
     Route: 048
     Dates: start: 20160903, end: 20160903

REACTIONS (7)
  - Tachycardia [Recovered/Resolved]
  - Confusional state [Recovered/Resolved]
  - Blood urine present [Recovered/Resolved]
  - Urinary retention [Recovered/Resolved]
  - Pruritus [Recovered/Resolved]
  - Vision blurred [Recovering/Resolving]
  - Drug hypersensitivity [Recovering/Resolving]

NARRATIVE: CASE EVENT DATE: 20160903
